FAERS Safety Report 7498977-3 (Version None)
Quarter: 2011Q2

REPORT INFORMATION
  Report Type: 
  Country: None (occurrence: None)
  Receive Date: 20110524
  Receipt Date: 20080613
  Transmission Date: 20111010
  Serious: Yes (Death, Other)
  Sender: FDA-Public Use
  Company Number: US-BAYER-2011-006979

PATIENT
  Age: 70 Year
  Sex: Male
  Weight: 136.5 kg

DRUGS (13)
  1. COUMADIN [Concomitant]
  2. ALLOPURINOL [Concomitant]
     Dosage: 300 MG, QD
  3. TRASYLOL [Suspect]
     Indication: CORONARY ARTERY BYPASS
     Dosage: UNK
     Route: 042
     Dates: start: 20050620
  4. GLUCOTROL XL [Concomitant]
     Dosage: 10 MG, QD
  5. MAVIK [Concomitant]
  6. CARDIZEM CD [Concomitant]
     Dosage: 240 MG, QD
  7. CORDARONE [Concomitant]
     Dosage: 240 MG, QD
  8. TRASYLOL [Suspect]
     Indication: AORTIC VALVE REPLACEMENT
  9. HYDROCHLOROTHIAZIDE [Concomitant]
     Dosage: 50 MG, QD
  10. LOPID [Concomitant]
     Dosage: 600 MG, BID
  11. ACTOS [Concomitant]
     Dosage: 45 MG, QD
  12. LEXAPRO [Concomitant]
     Dosage: 10 MG, QD
  13. FLONASE [Concomitant]

REACTIONS (10)
  - INTESTINAL ISCHAEMIA [None]
  - RENAL FAILURE ACUTE [None]
  - PAIN [None]
  - CARDIO-RESPIRATORY ARREST [None]
  - EMBOLISM [None]
  - EMOTIONAL DISTRESS [None]
  - RENAL FAILURE [None]
  - INJURY [None]
  - RENAL INJURY [None]
  - RENAL DISORDER [None]
